FAERS Safety Report 18868694 (Version 1)
Quarter: 2021Q1

REPORT INFORMATION
  Report Type: Spontaneous
  Country: FR (occurrence: FR)
  Receive Date: 20210209
  Receipt Date: 20210209
  Transmission Date: 20210420
  Serious: Yes (Hospitalization)
  Sender: FDA-Public Use
  Company Number: FR-ALLERGAN-2105685US

PATIENT
  Sex: Male
  Weight: 75 kg

DRUGS (7)
  1. ESCITALOPRAM OXALATE ? BP [Suspect]
     Active Substance: ESCITALOPRAM OXALATE
     Indication: DEPRESSION
     Route: 048
     Dates: start: 2010
  2. DIFFU K [Concomitant]
     Active Substance: POTASSIUM CHLORIDE
     Route: 048
  3. PROCORALAN [Concomitant]
     Active Substance: IVABRADINE
  4. LYRICA [Suspect]
     Active Substance: PREGABALIN
     Indication: HERNIA
     Route: 048
     Dates: start: 20101128, end: 20180622
  5. LORMETAZEPAM [Suspect]
     Active Substance: LORMETAZEPAM
     Indication: ANXIETY
     Route: 048
     Dates: start: 2010
  6. BACLOFEN. [Suspect]
     Active Substance: BACLOFEN
     Indication: PRODUCT USED FOR UNKNOWN INDICATION
     Route: 048
     Dates: start: 2010, end: 20180622
  7. AMLOR [Concomitant]
     Active Substance: AMLODIPINE BESYLATE

REACTIONS (4)
  - Memory impairment [Not Recovered/Not Resolved]
  - Hypertension [Not Recovered/Not Resolved]
  - Loss of consciousness [Recovered/Resolved]
  - Erectile dysfunction [Not Recovered/Not Resolved]

NARRATIVE: CASE EVENT DATE: 2016
